FAERS Safety Report 8567780-5 (Version None)
Quarter: 2012Q3

REPORT INFORMATION
  Report Type: 
  Country: None (occurrence: None)
  Receive Date: 20120803
  Receipt Date: 20120730
  Transmission Date: 20120928
  Serious: Yes (Hospitalization, Other)
  Sender: FDA-Public Use
  Company Number: CA-TEVA-351383USA

PATIENT
  Age: 41 Year
  Sex: Male

DRUGS (8)
  1. EPOGEN [Concomitant]
     Route: 065
  2. CYCLOPHOSPHAMIDE [Suspect]
     Indication: B-CELL LYMPHOMA STAGE IV
     Route: 065
  3. DOXORUBICIN HCL [Suspect]
     Indication: B-CELL LYMPHOMA STAGE IV
     Route: 065
  4. VINCRISTINE [Suspect]
     Indication: B-CELL LYMPHOMA STAGE IV
     Route: 065
  5. ENOXAPARIN SODIUM [Concomitant]
     Route: 065
  6. FILGRASTIM [Concomitant]
     Route: 065
  7. RITUXIMAB [Suspect]
     Indication: B-CELL LYMPHOMA STAGE IV
     Route: 065
  8. PREDNISONE [Suspect]
     Indication: B-CELL LYMPHOMA STAGE IV
     Route: 065

REACTIONS (4)
  - FEBRILE NEUTROPENIA [None]
  - DIARRHOEA [None]
  - ECTHYMA [None]
  - PSEUDOMONAS INFECTION [None]
